FAERS Safety Report 25181753 (Version 1)
Quarter: 2025Q2

REPORT INFORMATION
  Report Type: Spontaneous
  Country: US (occurrence: US)
  Receive Date: 20250410
  Receipt Date: 20250410
  Transmission Date: 20250716
  Serious: No
  Sender: ELI LILLY AND CO
  Company Number: US-ELI_LILLY_AND_COMPANY-US202504007943

PATIENT
  Age: 58 Year
  Sex: Female

DRUGS (8)
  1. MOUNJARO [Suspect]
     Active Substance: TIRZEPATIDE
     Indication: Thyroid hormones increased
     Route: 058
  2. MOUNJARO [Suspect]
     Active Substance: TIRZEPATIDE
     Indication: Thyroid hormones increased
     Route: 058
  3. MOUNJARO [Suspect]
     Active Substance: TIRZEPATIDE
     Indication: Thyroid hormones increased
     Route: 058
  4. MOUNJARO [Suspect]
     Active Substance: TIRZEPATIDE
     Indication: Thyroid hormones increased
     Route: 058
  5. MOUNJARO [Suspect]
     Active Substance: TIRZEPATIDE
     Indication: Glycosylated haemoglobin increased
  6. MOUNJARO [Suspect]
     Active Substance: TIRZEPATIDE
     Indication: Glycosylated haemoglobin increased
  7. MOUNJARO [Suspect]
     Active Substance: TIRZEPATIDE
     Indication: Glycosylated haemoglobin increased
  8. MOUNJARO [Suspect]
     Active Substance: TIRZEPATIDE
     Indication: Glycosylated haemoglobin increased

REACTIONS (1)
  - Extra dose administered [Unknown]
